FAERS Safety Report 12146414 (Version 1)
Quarter: 2016Q1

REPORT INFORMATION
  Report Type: Spontaneous
  Country: BE (occurrence: BE)
  Receive Date: 20160304
  Receipt Date: 20160304
  Transmission Date: 20160526
  Serious: Yes (Hospitalization, Other)
  Sender: FDA-Public Use
  Company Number: BE-SEBELA IRELAND LIMITED-2016SEB00021

PATIENT
  Age: 44 Year
  Sex: Male

DRUGS (1)
  1. AZATHIOPRINE. [Suspect]
     Active Substance: AZATHIOPRINE
     Dosage: UNK
     Route: 065
     Dates: start: 2003, end: 2010

REACTIONS (5)
  - Pancytopenia [Recovering/Resolving]
  - Varices oesophageal [Unknown]
  - Nodular regenerative hyperplasia [Unknown]
  - Portal hypertension [Unknown]
  - Splenomegaly [Unknown]

NARRATIVE: CASE EVENT DATE: 2010
